FAERS Safety Report 22030686 (Version 2)
Quarter: 2023Q1

REPORT INFORMATION
  Report Type: Spontaneous
  Country: IT (occurrence: IT)
  Receive Date: 20230223
  Receipt Date: 20230310
  Transmission Date: 20230417
  Serious: Yes (Life-Threatening, Hospitalization)
  Sender: FDA-Public Use
  Company Number: IT-TEVA-2023-IT-2859326

PATIENT
  Age: 50 Year
  Sex: Female

DRUGS (2)
  1. EPIRUBICIN [Suspect]
     Active Substance: EPIRUBICIN
     Indication: Breast cancer female
     Dosage: RECEIVED FIRST DOSE
     Route: 065
  2. CYCLOPHOSPHAMIDE [Suspect]
     Active Substance: CYCLOPHOSPHAMIDE
     Indication: Breast cancer female
     Dosage: RECEIVED FIRST DOSE
     Route: 065

REACTIONS (3)
  - Cardiogenic shock [Recovering/Resolving]
  - Thrombocytopenia [Recovering/Resolving]
  - Myelosuppression [Recovering/Resolving]
